FAERS Safety Report 4356632-2 (Version None)
Quarter: 2004Q2

REPORT INFORMATION
  Report Type: 
  Country: None (occurrence: None)
  Receive Date: 20040507
  Receipt Date: 20040421
  Transmission Date: 20050107
  Serious: Yes (Death, Hospitalization)
  Sender: FDA-Public Use
  Company Number: JP_040403033

PATIENT
  Age: 32 Year
  Sex: Female
  Weight: 51 kg

DRUGS (1)
  1. VINCRISTINE SULFATE [Suspect]
     Indication: LYMPHOMA
     Dosage: 1.6 MG OTHER
     Route: 050
     Dates: start: 19990901

REACTIONS (28)
  - ABDOMINAL DISTENSION [None]
  - ANTI-HBC ANTIBODY POSITIVE [None]
  - BLOOD ALBUMIN DECREASED [None]
  - BLOOD LACTATE DEHYDROGENASE INCREASED [None]
  - CEREBROVASCULAR DISORDER [None]
  - CHROMOSOME ABNORMALITY [None]
  - CHYLOTHORAX [None]
  - GASTRITIS EROSIVE [None]
  - GASTROINTESTINAL OEDEMA [None]
  - HAEMANGIOMA [None]
  - HAEMOGLOBIN DECREASED [None]
  - HIGH DENSITY LIPOPROTEIN DECREASED [None]
  - LABORATORY TEST ABNORMAL [None]
  - LYMPHANGIOMA [None]
  - LYMPHOCYTE PERCENTAGE DECREASED [None]
  - MALIGNANT ASCITES [None]
  - MALIGNANT PLEURAL EFFUSION [None]
  - MELAENA [None]
  - MONOCYTE PERCENTAGE DECREASED [None]
  - NEUTROPHIL PERCENTAGE INCREASED [None]
  - NIGHT SWEATS [None]
  - NUCLEAR MAGNETIC RESONANCE IMAGING ABNORMAL [None]
  - PARAPLEGIA [None]
  - PITTING OEDEMA [None]
  - PLATELET COUNT INCREASED [None]
  - PROTEIN TOTAL DECREASED [None]
  - PYREXIA [None]
  - SHOCK HAEMORRHAGIC [None]
